FAERS Safety Report 13657772 (Version 4)
Quarter: 2017Q2

REPORT INFORMATION
  Report Type: Spontaneous
  Country: JP (occurrence: JP)
  Receive Date: 20170615
  Receipt Date: 20170626
  Transmission Date: 20170830
  Serious: Yes (Other)
  Sender: FDA-Public Use
  Company Number: JP-ROCHE-1950380

PATIENT
  Age: 30 Year
  Sex: Female

DRUGS (7)
  1. CELLCEPT [Suspect]
     Active Substance: MYCOPHENOLATE MOFETIL\MYCOPHENOLATE MOFETIL HYDROCHLORIDE
     Indication: IMMUNOSUPPRESSION
     Route: 048
  2. ECULIZUMAB [Concomitant]
     Active Substance: ECULIZUMAB
  3. MEDROL [Concomitant]
     Active Substance: METHYLPREDNISOLONE
     Dosage: DOSAGE IS UNCERTAIN.
     Route: 065
  4. RITUXAN [Concomitant]
     Active Substance: RITUXIMAB
     Route: 041
  5. TACROLIMUS HYDRATE [Concomitant]
     Active Substance: TACROLIMUS
     Dosage: DOSAGE IS UNCERTAIN.
     Route: 065
  6. CYCLOSPORINE A [Concomitant]
     Active Substance: CYCLOSPORINE
  7. BASILIXIMAB [Concomitant]
     Active Substance: BASILIXIMAB
     Dosage: GENETICAL RECOMBINATION
     Route: 065

REACTIONS (1)
  - Haemolytic uraemic syndrome [Recovered/Resolved with Sequelae]
